FAERS Safety Report 7487829-0 (Version None)
Quarter: 2011Q2

REPORT INFORMATION
  Report Type: 
  Country: None (occurrence: None)
  Receive Date: 20110511
  Receipt Date: 20110427
  Transmission Date: 20111010
  Serious: Yes (Hospitalization)
  Sender: FDA-Public Use
  Company Number: 2011MA004791

PATIENT
  Age: 26 Year
  Sex: Male

DRUGS (2)
  1. CITALOPRAM HYDROBROMIDE [Suspect]
     Indication: DEPRESSION
     Dosage: 20 MG;QD
     Dates: start: 20110101, end: 20110402
  2. METOPROLOL TARTRATE [Concomitant]

REACTIONS (1)
  - VENTRICULAR FIBRILLATION [None]
